FAERS Safety Report 5560426-X (Version None)
Quarter: 2007Q4

REPORT INFORMATION
  Report Type: 
  Country: None (occurrence: None)
  Receive Date: 20071215
  Receipt Date: 20071114
  Transmission Date: 20080405
  Serious: Yes (Death)
  Sender: FDA-Public Use
  Company Number: US-ABBOTT-07P-163-0424046-00

PATIENT
  Sex: Female
  Weight: 65.83 kg

DRUGS (6)
  1. HUMIRA [Suspect]
     Indication: RHEUMATOID ARTHRITIS
     Route: 058
     Dates: start: 20050101
  2. ANTIDEPRESSANT [Concomitant]
     Indication: DEPRESSION
     Route: 048
     Dates: start: 20060101
  3. ANTIPSYCHOTIC [Concomitant]
     Indication: DEPRESSION
     Route: 048
     Dates: start: 20060101
  4. CHOLESTEROL MEDICATION [Concomitant]
     Indication: BLOOD CHOLESTEROL INCREASED
     Route: 048
  5. LEVOTHYROXINE SODIUM [Concomitant]
     Indication: DRUG USE FOR UNKNOWN INDICATION
     Route: 048
  6. METHOTREXATE [Concomitant]
     Indication: DRUG USE FOR UNKNOWN INDICATION
     Route: 048

REACTIONS (6)
  - ANOREXIA [None]
  - ASTHENIA [None]
  - DEATH [None]
  - DEPRESSION [None]
  - FATIGUE [None]
  - WHEELCHAIR USER [None]
